FAERS Safety Report 6008526-4 (Version None)
Quarter: 2008Q4

REPORT INFORMATION
  Report Type: 
  Country: None (occurrence: None)
  Receive Date: 20081217
  Receipt Date: 20081205
  Transmission Date: 20090506
  Serious: Yes (Hospitalization, Other)
  Sender: FDA-Public Use
  Company Number: CH-WYE-G02725008

PATIENT
  Age: 63 Year
  Sex: Male

DRUGS (12)
  1. EFFEXOR [Suspect]
     Indication: ANXIETY DISORDER
     Route: 048
     Dates: start: 20080101, end: 20080901
  2. EFFEXOR [Interacting]
     Indication: DEPRESSION
     Route: 048
     Dates: start: 20080901, end: 20081101
  3. ISOFLURANE [Concomitant]
     Dosage: DOSE UNKNOWN, USED DURING THE OPERATION
     Dates: start: 20081112, end: 20081112
  4. PROPOFOL [Concomitant]
     Dosage: DOSE UNKNOWN, USED DURING THE OPERATION
     Dates: start: 20081112, end: 20081112
  5. RINGER'S [Concomitant]
     Dosage: 6 L, USED DURING THE OPERATION
     Dates: start: 20081112, end: 20081112
  6. SUFENTANIL CITRATE [Concomitant]
     Dosage: 27.5 UG, USED DURING THE OPERATION
     Dates: start: 20081112, end: 20081112
  7. GARAMYCIN [Concomitant]
     Dosage: 80 MG, USED DURING THE OPERATION
     Dates: start: 20081112, end: 20081112
  8. CEFAZOLIN [Concomitant]
     Dosage: 1000 MG, USED DURING AND AFTER THE OPERATION
     Dates: start: 20081112, end: 20081101
  9. METRONIDAZOLE [Concomitant]
     Dosage: 500 MG, USED DURING AND AFTER THE OPERATION
     Dates: start: 20081112, end: 20081101
  10. DURAGESIC-100 [Interacting]
     Dosage: 75 UG/H
     Dates: end: 20081031
  11. DURAGESIC-100 [Interacting]
     Dosage: 150 UG/H
     Dates: start: 20081101
  12. MIDAZOLAM HCL [Concomitant]
     Dosage: 2 MG, USED DURING THE OPERATION
     Dates: start: 20081112, end: 20081112

REACTIONS (13)
  - BLOOD CREATINE PHOSPHOKINASE INCREASED [None]
  - CHILLS [None]
  - DRUG INTERACTION [None]
  - HYPERREFLEXIA [None]
  - INFLAMMATION [None]
  - MYOCLONUS [None]
  - NEUTROPHILIA [None]
  - PNEUMATURIA [None]
  - PROCALCITONIN INCREASED [None]
  - PYREXIA [None]
  - RECTOURETHRAL FISTULA [None]
  - SEROTONIN SYNDROME [None]
  - UROSEPSIS [None]
